FAERS Safety Report 4302551-7 (Version None)
Quarter: 2004Q1

REPORT INFORMATION
  Report Type: 
  Country: None (occurrence: None)
  Receive Date: 20040217
  Receipt Date: 20030321
  Transmission Date: 20041129
  Serious: Yes (Other)
  Sender: FDA-Public Use
  Company Number: 2003151832US

PATIENT
  Sex: Female

DRUGS (1)
  1. CYTOTEC [Suspect]

REACTIONS (2)
  - STILLBIRTH [None]
  - UTERINE RUPTURE [None]
